FAERS Safety Report 18729349 (Version 1)
Quarter: 2021Q1

REPORT INFORMATION
  Report Type: Spontaneous
  Country: CA (occurrence: CA)
  Receive Date: 20210112
  Receipt Date: 20210112
  Transmission Date: 20210419
  Serious: Yes (Other)
  Sender: FDA-Public Use
  Company Number: CA-ACCORD-213526

PATIENT
  Age: 11 Year
  Sex: Male

DRUGS (5)
  1. METHOTREXATE. [Suspect]
     Active Substance: METHOTREXATE
     Indication: CROHN^S DISEASE
     Route: 058
  2. BUDESONIDE. [Concomitant]
     Active Substance: BUDESONIDE
     Indication: CROHN^S DISEASE
  3. INFLIXIMAB [Concomitant]
     Active Substance: INFLIXIMAB
     Indication: CROHN^S DISEASE
     Route: 042
  4. PREDNISONE. [Concomitant]
     Active Substance: PREDNISONE
     Indication: CROHN^S DISEASE
  5. AZATHIOPRINE. [Concomitant]
     Active Substance: AZATHIOPRINE
     Indication: CROHN^S DISEASE

REACTIONS (25)
  - Dyspnoea [Unknown]
  - Fatigue [Unknown]
  - Immunosuppression [Unknown]
  - Mood swings [Unknown]
  - Personality change [Unknown]
  - Constipation [Unknown]
  - Agitation [Unknown]
  - Cushingoid [Unknown]
  - Depression [Unknown]
  - Impaired healing [Unknown]
  - Tremor [Unknown]
  - Asthenia [Unknown]
  - Loss of personal independence in daily activities [Unknown]
  - Product use issue [Unknown]
  - Restlessness [Unknown]
  - Swelling face [Unknown]
  - Disturbance in attention [Unknown]
  - Irritability [Unknown]
  - Memory impairment [Unknown]
  - Muscle atrophy [Unknown]
  - Condition aggravated [Unknown]
  - Muscular weakness [Unknown]
  - Increased tendency to bruise [Unknown]
  - Nausea [Unknown]
  - Off label use [Unknown]
